FAERS Safety Report 8143616-1 (Version None)
Quarter: 2012Q1

REPORT INFORMATION
  Report Type: 
  Country: None (occurrence: None)
  Receive Date: 20120103
  Receipt Date: 20111102
  Transmission Date: 20120608
  Serious: No
  Sender: FDA-Public Use
  Company Number: AE-2011-002990

PATIENT
  Age: 57 Year
  Sex: Male
  Weight: 61.6892 kg

DRUGS (8)
  1. METFORMIN HCL [Concomitant]
  2. CYMBALTA [Concomitant]
  3. INCIVEK [Suspect]
     Dosage: 2250 MG (750 MG, 1 IN 8 HR), ORAL
     Route: 048
     Dates: start: 20111007
  4. CENTRUM SILVER FOR MEN (MULTIVITAMIN AND MINERAL SUPPLEMENT) [Concomitant]
  5. RIBAVIRIN [Concomitant]
  6. PEGASYS [Concomitant]
  7. NIASPAN [Concomitant]
  8. LISINOPRIL [Concomitant]

REACTIONS (3)
  - VOMITING [None]
  - PRURITUS GENERALISED [None]
  - NAUSEA [None]
